FAERS Safety Report 9575263 (Version 1)
Quarter: 2013Q4

REPORT INFORMATION
  Report Type: Spontaneous
  Country: DE (occurrence: DE)
  Receive Date: 20131001
  Receipt Date: 20131001
  Transmission Date: 20140711
  Serious: Yes (Death, Hospitalization)
  Sender: FDA-Public Use
  Company Number: DE-GLAXOSMITHKLINE-D0079905A

PATIENT
  Age: 65 Year
  Sex: Male
  Weight: 76 kg

DRUGS (5)
  1. ARIXTRA [Suspect]
     Indication: THROMBOSIS PROPHYLAXIS
     Dosage: 7.5MG PER DAY
     Route: 065
     Dates: start: 20130410, end: 20130504
  2. ASS [Concomitant]
     Dosage: 100MG PER DAY
     Route: 048
     Dates: start: 20130410, end: 20130505
  3. DELIX [Concomitant]
     Dosage: 5MG PER DAY
     Route: 048
     Dates: start: 20130410, end: 20130505
  4. CIPRALEX [Concomitant]
     Route: 065
     Dates: start: 20130410, end: 20130505
  5. TAMSULOSIN [Concomitant]
     Route: 065
     Dates: start: 2013

REACTIONS (3)
  - Brain stem haemorrhage [Fatal]
  - Coma [Unknown]
  - Epistaxis [Recovered/Resolved]
